FAERS Safety Report 8514843-6 (Version None)
Quarter: 2012Q3

REPORT INFORMATION
  Report Type: 
  Country: None (occurrence: None)
  Receive Date: 20120717
  Receipt Date: 20120710
  Transmission Date: 20120928
  Serious: Yes (Other)
  Sender: FDA-Public Use
  Company Number: JP-PFIZER INC-2012166864

PATIENT
  Age: 73 Year
  Sex: Male

DRUGS (4)
  1. NORTRIPTYLINE [Concomitant]
     Indication: POST HERPETIC NEURALGIA
     Dosage: UNK
  2. LYRICA [Suspect]
     Indication: POST HERPETIC NEURALGIA
     Dosage: UNK
  3. DULOXETIME HYDROCHLORIDE [Interacting]
     Indication: POST HERPETIC NEURALGIA
     Dosage: UNK
  4. ACETAMINOPHEN [Concomitant]
     Indication: POST HERPETIC NEURALGIA
     Dosage: UNK

REACTIONS (2)
  - LOSS OF CONSCIOUSNESS [None]
  - DRUG INTERACTION [None]
